FAERS Safety Report 6097744-5 (Version None)
Quarter: 2009Q1

REPORT INFORMATION
  Report Type: 
  Country: None (occurrence: None)
  Receive Date: 20090227
  Receipt Date: 20090217
  Transmission Date: 20090719
  Serious: Yes (Other)
  Sender: FDA-Public Use
  Company Number: GB-PURDUE-GBR_2009_0004885

PATIENT
  Age: 50 Year
  Sex: Male

DRUGS (1)
  1. MST CONTINUS SUSPENSION [Suspect]
     Indication: PAIN
     Route: 065

REACTIONS (1)
  - INFERTILITY MALE [None]
